FAERS Safety Report 7095849-3 (Version None)
Quarter: 2010Q4

REPORT INFORMATION
  Report Type: 
  Country: None (occurrence: None)
  Receive Date: 20101109
  Receipt Date: 20101109
  Transmission Date: 20110411
  Serious: Yes (Death)
  Sender: FDA-Public Use
  Company Number: None

PATIENT
  Age: 53 Year
  Sex: Female
  Weight: 72.5755 kg

DRUGS (1)
  1. HALOPERIDOL [Suspect]
     Indication: PHYSICAL EXAMINATION
     Dosage: 5 MG NOW IV BOLUS SINGLE DOSE
     Route: 040

REACTIONS (1)
  - CARDIO-RESPIRATORY ARREST [None]
